FAERS Safety Report 6067788-8 (Version None)
Quarter: 2009Q1

REPORT INFORMATION
  Report Type: 
  Country: None (occurrence: None)
  Receive Date: 20090203
  Receipt Date: 20090128
  Transmission Date: 20090719
  Serious: Yes (Hospitalization)
  Sender: FDA-Public Use
  Company Number: GXBR2009US00554

PATIENT
  Age: 40 Year
  Sex: Male

DRUGS (2)
  1. RIBAVIRIN CAPSULES [Suspect]
     Indication: HEPATITIS C
     Dosage: ORAL
     Route: 048
     Dates: start: 20080801
  2. PEGASYS [Suspect]
     Indication: HEPATITIS C
     Dosage: 180 UG, INJECTION NOS
     Route: 030
     Dates: start: 20080801

REACTIONS (1)
  - RENAL FAILURE [None]
